FAERS Safety Report 25135291 (Version 1)
Quarter: 2025Q1

REPORT INFORMATION
  Report Type: Spontaneous
  Country: US (occurrence: US)
  Receive Date: 20250328
  Receipt Date: 20250328
  Transmission Date: 20250408
  Serious: No
  Sender: SANOFI AVENTIS
  Company Number: US-SA-2025SA089296

PATIENT
  Age: 65 Year
  Sex: Female

DRUGS (30)
  1. DUPIXENT [Suspect]
     Active Substance: DUPILUMAB
     Route: 058
     Dates: start: 20250313, end: 20250313
  2. ALBUTEROL SULFATE [Concomitant]
     Active Substance: ALBUTEROL SULFATE
  3. BETAMETHASONE DIPROPIONATE [Concomitant]
     Active Substance: BETAMETHASONE DIPROPIONATE
  4. CELECOXIB [Concomitant]
     Active Substance: CELECOXIB
  5. CITALOPRAM [Concomitant]
     Active Substance: CITALOPRAM
  6. LORATADINE [Concomitant]
     Active Substance: LORATADINE
  7. CLOBETASOL [Concomitant]
     Active Substance: CLOBETASOL
  8. CLOBETASOL [Concomitant]
     Active Substance: CLOBETASOL
  9. DICLOFENAC [Concomitant]
     Active Substance: DICLOFENAC
  10. DOXEPIN HYDROCHLORIDE [Concomitant]
     Active Substance: DOXEPIN HYDROCHLORIDE
  11. EPINEPHRINE [Concomitant]
     Active Substance: EPINEPHRINE
  12. EPINEPHRINE [Concomitant]
     Active Substance: EPINEPHRINE
  13. ESTRADIOL [Concomitant]
     Active Substance: ESTRADIOL
  14. FAMOTIDINE [Concomitant]
     Active Substance: FAMOTIDINE
  15. HYDROXYZINE PAMOATE [Concomitant]
     Active Substance: HYDROXYZINE PAMOATE
  16. LEVOTHYROXINE [Concomitant]
     Active Substance: LEVOTHYROXINE
  17. MELOXICAM [Concomitant]
     Active Substance: MELOXICAM
  18. NAPROXEN [Concomitant]
     Active Substance: NAPROXEN
  19. OLOPATADINE [Concomitant]
     Active Substance: OLOPATADINE
  20. OZEMPIC [Concomitant]
     Active Substance: SEMAGLUTIDE
  21. PANTOPRAZOLE [Concomitant]
     Active Substance: PANTOPRAZOLE
  22. PRAMIPEXOLE [Concomitant]
     Active Substance: PRAMIPEXOLE
  23. PREMARIN [Concomitant]
     Active Substance: ESTROGENS, CONJUGATED
  24. SYNVISC [Concomitant]
     Active Substance: HYLAN G-F 20
  25. SYSTANE (HYPROMELLOSE 2910 (4000 MPA.S)) [Concomitant]
     Active Substance: HYPROMELLOSE 2910 (4000 MPA.S)
  26. TIZANIDINE [Concomitant]
     Active Substance: TIZANIDINE
  27. TOPAMAX [Concomitant]
     Active Substance: TOPIRAMATE
  28. TRIAMCINOLONE [Concomitant]
     Active Substance: TRIAMCINOLONE
  29. HYDROCHLOROTHIAZIDE\TRIAMTERENE [Concomitant]
     Active Substance: HYDROCHLOROTHIAZIDE\TRIAMTERENE
  30. ZYRTEC [Concomitant]
     Active Substance: CETIRIZINE HYDROCHLORIDE

REACTIONS (4)
  - Discomfort [Unknown]
  - Sleep disorder due to a general medical condition [Unknown]
  - Asthma [Unknown]
  - Rash [Unknown]

NARRATIVE: CASE EVENT DATE: 20250301
